FAERS Safety Report 6023663-6 (Version None)
Quarter: 2008Q4

REPORT INFORMATION
  Report Type: 
  Country: None (occurrence: None)
  Receive Date: 20081229
  Receipt Date: 20081229
  Transmission Date: 20090506
  Serious: Yes (Life-Threatening, Hospitalization, Other)
  Sender: FDA-Public Use
  Company Number: None

PATIENT
  Age: 40 Year
  Sex: Female
  Weight: 92.9874 kg

DRUGS (1)
  1. ETHEX MORPHINE ETHEX [Suspect]

REACTIONS (8)
  - ABDOMINAL PAIN [None]
  - APNOEA [None]
  - DYSPNOEA [None]
  - HEART RATE DECREASED [None]
  - HEPATIC ENZYME INCREASED [None]
  - LIVER INJURY [None]
  - LOSS OF CONSCIOUSNESS [None]
  - PRODUCT QUALITY ISSUE [None]
